FAERS Safety Report 9901585 (Version 1)
Quarter: 2014Q1

REPORT INFORMATION
  Report Type: Spontaneous
  Country: US (occurrence: US)
  Receive Date: 20140217
  Receipt Date: 20140217
  Transmission Date: 20141002
  Serious: No
  Sender: FDA-Public Use
  Company Number: US-GILEAD-2011-0044395

PATIENT
  Age: 49 Year
  Sex: Male

DRUGS (3)
  1. LETAIRIS [Suspect]
     Indication: PRODUCT USED FOR UNKNOWN INDICATION
     Dosage: 5 MG, QOD
     Route: 048
  2. LETAIRIS [Suspect]
     Dosage: 5 MG, QD
     Route: 048
     Dates: start: 20110709
  3. ADCIRCA [Concomitant]

REACTIONS (1)
  - Local swelling [Unknown]
